FAERS Safety Report 8113348-4 (Version None)
Quarter: 2012Q1

REPORT INFORMATION
  Report Type: 
  Country: None (occurrence: None)
  Receive Date: 20120203
  Receipt Date: 20120131
  Transmission Date: 20120608
  Serious: Yes (Life-Threatening, Hospitalization, Other)
  Sender: FDA-Public Use
  Company Number: PHHY2012SI008453

PATIENT
  Age: 23 Year
  Sex: Male

DRUGS (4)
  1. CLOZAPINE [Suspect]
     Indication: SCHIZOPHRENIA
     Dosage: 400 MG, QD
     Route: 048
     Dates: start: 20111106
  2. AKINETON [Concomitant]
     Dosage: UNK UKN, UNK
  3. SCOPOLAMINE [Concomitant]
     Dosage: UNK UKN, UNK
  4. HALDOL [Concomitant]
     Dosage: UNK UKN, UNK

REACTIONS (10)
  - GRAND MAL CONVULSION [None]
  - PNEUMONIA [None]
  - NEUTROPHIL COUNT DECREASED [None]
  - AGRANULOCYTOSIS [None]
  - SINUS TACHYCARDIA [None]
  - INFECTION [None]
  - SEPSIS [None]
  - ORAL FUNGAL INFECTION [None]
  - WHITE BLOOD CELL COUNT DECREASED [None]
  - PHARYNGOTONSILLITIS [None]
